FAERS Safety Report 5094367-1 (Version None)
Quarter: 2006Q3

REPORT INFORMATION
  Report Type: 
  Country: None (occurrence: None)
  Receive Date: 20060731
  Receipt Date: 20060424
  Transmission Date: 20061208
  Serious: No
  Sender: FDA-Public Use
  Company Number: 2006PV012633

PATIENT
  Age: 64 Year
  Sex: Female
  Weight: 73.4827 kg

DRUGS (10)
  1. BYETTA [Suspect]
     Indication: DIABETES MELLITUS NON-INSULIN-DEPENDENT
     Dosage: 5 MCG;BID;SC, SEE IMAGE
     Route: 058
     Dates: start: 20060320, end: 20060411
  2. BYETTA [Suspect]
     Indication: DIABETES MELLITUS NON-INSULIN-DEPENDENT
     Dosage: 5 MCG;BID;SC, SEE IMAGE
     Route: 058
     Dates: start: 20060412, end: 20060423
  3. BYETTA [Suspect]
     Indication: DIABETES MELLITUS NON-INSULIN-DEPENDENT
     Dosage: 5 MCG;BID;SC, SEE IMAGE
     Route: 058
     Dates: start: 20060424
  4. BYETTA [Suspect]
  5. ................ [Concomitant]
  6. GLUCOPHAGE [Concomitant]
  7. NPH INSULIN [Concomitant]
  8. NEXIUM [Concomitant]
  9. PREVACID [Concomitant]
  10. ACTOS [Concomitant]

REACTIONS (4)
  - ABDOMINAL PAIN UPPER [None]
  - BLOOD GLUCOSE INCREASED [None]
  - DIARRHOEA [None]
  - NAUSEA [None]
